FAERS Safety Report 23656468 (Version 1)
Quarter: 2024Q1

REPORT INFORMATION
  Report Type: Spontaneous
  Country: CA (occurrence: CA)
  Receive Date: 20240321
  Receipt Date: 20240321
  Transmission Date: 20240410
  Serious: Yes (Death, Other)
  Sender: FDA-Public Use
  Company Number: CA-SANDOZ-SDZ2023CA003340

PATIENT
  Age: 59 Year
  Sex: Female
  Weight: 54 kg

DRUGS (7)
  1. DEXAMETHASONE [Suspect]
     Active Substance: DEXAMETHASONE
     Indication: Breast cancer metastatic
     Dosage: 4 MG, Q8H
     Route: 065
  2. DIAZEPAM [Suspect]
     Active Substance: DIAZEPAM
     Indication: Breast cancer metastatic
     Dosage: 5 MG, Q8H
     Route: 065
  3. GABAPENTIN [Suspect]
     Active Substance: GABAPENTIN
     Indication: Breast cancer metastatic
     Dosage: 300 MG
     Route: 065
  4. GABAPENTIN [Suspect]
     Active Substance: GABAPENTIN
     Dosage: 900 MG, Q12H
     Route: 065
  5. MORPHINE [Suspect]
     Active Substance: MORPHINE
     Indication: Breast cancer metastatic
     Dosage: UNK
     Route: 058
  6. METHADOSE SUGAR-FREE [Suspect]
     Active Substance: METHADONE HYDROCHLORIDE
     Indication: Breast cancer metastatic
     Dosage: 10 MG, Q12H
     Route: 065
  7. METHADOSE SUGAR-FREE [Suspect]
     Active Substance: METHADONE HYDROCHLORIDE
     Indication: Breast cancer metastatic
     Dosage: 5 MG
     Route: 065

REACTIONS (6)
  - Disease progression [Fatal]
  - Musculoskeletal chest pain [Fatal]
  - Phyllodes tumour [Fatal]
  - Drug ineffective for unapproved indication [Fatal]
  - Off label use [Unknown]
  - Drug ineffective [Unknown]
